FAERS Safety Report 23279466 (Version 4)
Quarter: 2025Q1

REPORT INFORMATION
  Report Type: Report from Study
  Country: ES (occurrence: ES)
  Receive Date: 20231210
  Receipt Date: 20250311
  Transmission Date: 20250409
  Serious: Yes (Hospitalization, Other)
  Sender: AUROBINDO
  Company Number: ES-PFIZER INC-202300410245

PATIENT

DRUGS (2)
  1. BORTEZOMIB [Interacting]
     Active Substance: BORTEZOMIB
     Indication: Product used for unknown indication
     Route: 065
  2. NIRMATRELVIR\RITONAVIR [Interacting]
     Active Substance: NIRMATRELVIR\RITONAVIR
     Indication: COVID-19 treatment
     Dosage: UNK, ONCE A DAY (2X/DAY, 5 DAYS)
     Route: 065

REACTIONS (2)
  - Hypocalcaemia [Unknown]
  - Drug interaction [Unknown]
